FAERS Safety Report 15287999 (Version 1)
Quarter: 2018Q3

REPORT INFORMATION
  Report Type: Spontaneous
  Country: US (occurrence: US)
  Receive Date: 20180817
  Receipt Date: 20180817
  Transmission Date: 20181010
  Serious: No
  Sender: FDA-Public Use
  Company Number: US-PFIZER INC-2018330563

PATIENT

DRUGS (1)
  1. EUCRISA [Suspect]
     Active Substance: CRISABOROLE
     Dosage: UNK

REACTIONS (4)
  - Skin hypertrophy [Unknown]
  - Application site erythema [Unknown]
  - Application site pruritus [Unknown]
  - Drug hypersensitivity [Unknown]
